FAERS Safety Report 24610338 (Version 1)
Quarter: 2024Q4

REPORT INFORMATION
  Report Type: Spontaneous
  Country: US (occurrence: US)
  Receive Date: 20241112
  Receipt Date: 20241112
  Transmission Date: 20250115
  Serious: Yes (Other)
  Sender: RECKITT BENCKISER
  Company Number: US-Indivior Limited-INDV-156669-2024

PATIENT

DRUGS (2)
  1. SUBLOCADE [Suspect]
     Active Substance: BUPRENORPHINE
     Indication: Drug dependence
     Dosage: 300 MILLIGRAM, ONE TIME DOSE
     Route: 058
     Dates: start: 20240923
  2. SUBLOCADE [Suspect]
     Active Substance: BUPRENORPHINE

REACTIONS (6)
  - Cardiac failure [Recovering/Resolving]
  - Pulmonary oedema [Recovering/Resolving]
  - Pneumonia [Recovering/Resolving]
  - Drug intolerance [Not Recovered/Not Resolved]
  - Injection site rash [Not Recovered/Not Resolved]
  - Drug withdrawal syndrome [Not Recovered/Not Resolved]

NARRATIVE: CASE EVENT DATE: 20240101
